FAERS Safety Report 20518960 (Version 2)
Quarter: 2023Q2

REPORT INFORMATION
  Report Type: Report from Study
  Country: DE (occurrence: DE)
  Receive Date: 20220225
  Receipt Date: 20230615
  Transmission Date: 20230721
  Serious: Yes (Other)
  Sender: FDA-Public Use
  Company Number: DE-AMGEN-DEUNI2022032169

PATIENT
  Age: 61 Year
  Sex: Female
  Weight: 107 kg

DRUGS (15)
  1. PANITUMUMAB [Suspect]
     Active Substance: PANITUMUMAB
     Indication: Colorectal cancer metastatic
     Dosage: 640 MILLIGRAM
     Route: 042
     Dates: start: 20210607
  2. PANITUMUMAB [Suspect]
     Active Substance: PANITUMUMAB
     Dosage: 540 MILLIGRAM
     Route: 042
     Dates: start: 20210816
  3. FLUOROURACIL [Suspect]
     Active Substance: FLUOROURACIL
     Indication: Colorectal cancer metastatic
     Dosage: 800 MILLIGRAM
     Route: 040
     Dates: start: 20210607
  4. FLUOROURACIL [Suspect]
     Active Substance: FLUOROURACIL
     Dosage: 4800 MILLIGRAM
     Route: 042
     Dates: start: 20210607
  5. FLUOROURACIL [Suspect]
     Active Substance: FLUOROURACIL
     Dosage: 760 MILLIGRAM
     Route: 040
     Dates: start: 20210816
  6. FLUOROURACIL [Suspect]
     Active Substance: FLUOROURACIL
     Dosage: 4600 MILLIGRAM
     Route: 042
     Dates: start: 20210816
  7. OXALIPLATIN [Suspect]
     Active Substance: OXALIPLATIN
     Indication: Colorectal cancer metastatic
     Dosage: 175 MILLIGRAM
     Route: 065
     Dates: start: 20210607
  8. OXALIPLATIN [Suspect]
     Active Substance: OXALIPLATIN
     Dosage: 163 MILLIGRAM
     Route: 065
     Dates: start: 20210816
  9. LEUCOVORIN [Suspect]
     Active Substance: LEUCOVORIN
     Indication: Colorectal cancer metastatic
     Dosage: 800 MILLIGRAM
     Route: 065
     Dates: start: 20210607
  10. LEUCOVORIN [Suspect]
     Active Substance: LEUCOVORIN
     Dosage: 760 MILLIGRAM
     Route: 065
     Dates: start: 20210816
  11. SIMVASTATIN [Concomitant]
     Active Substance: SIMVASTATIN
     Dosage: 30 MILLIGRAM
     Route: 048
  12. FUROSEMIDE [Concomitant]
     Active Substance: FUROSEMIDE
     Dosage: 40 MILLIGRAM
     Route: 048
  13. METOPROLOL [Concomitant]
     Active Substance: METOPROLOL
     Dosage: 95 MILLIGRAM
     Route: 048
  14. PANTOPRAZOLE [Concomitant]
     Active Substance: PANTOPRAZOLE
     Dosage: 20 MILLIGRAM
     Route: 048
  15. METFORMIN [Concomitant]
     Active Substance: METFORMIN HYDROCHLORIDE
     Indication: Diabetes mellitus
     Dosage: 500 MILLIGRAM

REACTIONS (1)
  - Leukopenia [Recovered/Resolved]

NARRATIVE: CASE EVENT DATE: 20220221
